FAERS Safety Report 24971659 (Version 2)
Quarter: 2025Q2

REPORT INFORMATION
  Report Type: Report from Study
  Country: US (occurrence: US)
  Receive Date: 20250214
  Receipt Date: 20250428
  Transmission Date: 20250716
  Serious: Yes (Other)
  Sender: NOVARTIS
  Company Number: US-002147023-NVSC2024US099511

PATIENT
  Sex: Female

DRUGS (1)
  1. KESIMPTA [Suspect]
     Active Substance: OFATUMUMAB
     Indication: Product used for unknown indication
     Route: 065

REACTIONS (22)
  - Pneumonia [Recovered/Resolved]
  - Arthralgia [Unknown]
  - Myalgia [Unknown]
  - Feeling abnormal [Unknown]
  - Fatigue [Unknown]
  - Agitation [Unknown]
  - Anger [Recovering/Resolving]
  - Back pain [Unknown]
  - Pelvic pain [Unknown]
  - Cystitis [Recovered/Resolved]
  - Bronchitis [Recovered/Resolved]
  - Conjunctivitis [Recovered/Resolved]
  - Infection [Recovering/Resolving]
  - Spinal pain [Recovering/Resolving]
  - Headache [Recovering/Resolving]
  - Quality of life decreased [Recovering/Resolving]
  - Dyspnoea [Recovering/Resolving]
  - Sputum discoloured [Recovering/Resolving]
  - Stress [Recovering/Resolving]
  - Pain [Recovering/Resolving]
  - Productive cough [Recovering/Resolving]
  - Disease recurrence [Recovering/Resolving]
